FAERS Safety Report 5381999-6 (Version None)
Quarter: 2007Q3

REPORT INFORMATION
  Report Type: 
  Country: None (occurrence: None)
  Receive Date: 20070709
  Receipt Date: 20070629
  Transmission Date: 20080115
  Serious: Yes (Hospitalization)
  Sender: FDA-Public Use
  Company Number: B0477628A

PATIENT
  Age: 59 Year
  Sex: Male

DRUGS (2)
  1. AVANDAMET [Suspect]
     Dosage: 1TAB TWICE PER DAY
     Route: 048
     Dates: start: 20070401, end: 20070601
  2. AMARYL [Concomitant]
     Route: 065

REACTIONS (5)
  - CARDIAC FAILURE [None]
  - CORONARY ARTERY STENOSIS [None]
  - ORTHOPNOEA [None]
  - PLEURISY [None]
  - RESPIRATORY TRACT INFECTION [None]
